FAERS Safety Report 5151750-3 (Version None)
Quarter: 2006Q4

REPORT INFORMATION
  Report Type: 
  Country: None (occurrence: None)
  Receive Date: 20061107
  Receipt Date: 20061023
  Transmission Date: 20070319
  Serious: Yes (Other)
  Sender: FDA-Public Use
  Company Number: A03200606398

PATIENT
  Age: 35 Year
  Sex: Male

DRUGS (3)
  1. AMBIEN [Suspect]
     Indication: INSOMNIA
     Dosage: 5-10 MG PRN - ORAL
     Route: 048
     Dates: start: 20020101, end: 20061001
  2. ACETYLSALICYLIC ACID SRT [Concomitant]
  3. ESCITALOPRAM [Concomitant]

REACTIONS (10)
  - ABNORMAL BEHAVIOUR [None]
  - AGGRESSION [None]
  - CONVULSION [None]
  - DRUG WITHDRAWAL SYNDROME [None]
  - HYPERHIDROSIS [None]
  - INJURY [None]
  - REFUSAL OF TREATMENT BY PATIENT [None]
  - RETCHING [None]
  - SUICIDE ATTEMPT [None]
  - TREMOR [None]
